FAERS Safety Report 19724071 (Version 1)
Quarter: 2021Q3

REPORT INFORMATION
  Report Type: Spontaneous
  Country: US (occurrence: US)
  Receive Date: 20210819
  Receipt Date: 20210819
  Transmission Date: 20211014
  Serious: No
  Sender: FDA-Public Use
  Company Number: US-AMGEN-USASP2021127363

PATIENT
  Age: 43 Year
  Sex: Male

DRUGS (12)
  1. CONTOUR [ESOMEPRAZOLE MAGNESIUM] [Concomitant]
  2. MELOXICAM. [Concomitant]
     Active Substance: MELOXICAM
  3. ERGOCALCIFEROL. [Concomitant]
     Active Substance: ERGOCALCIFEROL
  4. GABAPENTIN. [Concomitant]
     Active Substance: GABAPENTIN
  5. FAMOTIDINE. [Concomitant]
     Active Substance: FAMOTIDINE
  6. OTEZLA [Suspect]
     Active Substance: APREMILAST
     Indication: PSORIATIC ARTHROPATHY
     Dosage: 30 MILLIGRAM, BID (10 MG, 20 MG, 30 MG (28 DAY STARTER PACK) AS DIRECTED)
     Route: 048
     Dates: start: 20210714
  7. CALCIUM [Concomitant]
     Active Substance: CALCIUM
  8. HYDROXYCHLOROQUIN [Concomitant]
     Active Substance: HYDROXYCHLOROQUINE SULFATE
  9. OMEPRAZOLE. [Concomitant]
     Active Substance: OMEPRAZOLE
  10. PIOGLITAZONE. [Concomitant]
     Active Substance: PIOGLITAZONE
  11. ROSUVASTATIN. [Concomitant]
     Active Substance: ROSUVASTATIN
  12. GEMFIBROZIL. [Concomitant]
     Active Substance: GEMFIBROZIL

REACTIONS (2)
  - Diarrhoea [Not Recovered/Not Resolved]
  - Product dose omission issue [Not Recovered/Not Resolved]

NARRATIVE: CASE EVENT DATE: 2021
